FAERS Safety Report 9518522 (Version 1)
Quarter: 2013Q3

REPORT INFORMATION
  Report Type: Spontaneous
  Country: JP (occurrence: JP)
  Receive Date: 20130912
  Receipt Date: 20130912
  Transmission Date: 20140515
  Serious: Yes (Other)
  Sender: FDA-Public Use
  Company Number: JP-PFIZER INC-2012028296

PATIENT
  Age: 73 Year
  Sex: Male

DRUGS (4)
  1. ZYVOX [Suspect]
     Indication: PNEUMONIA STAPHYLOCOCCAL
     Dosage: 600 MG, 2X/DAY
     Route: 042
     Dates: start: 20120122, end: 20120129
  2. ZYVOX [Suspect]
     Indication: PANCREATIC PSEUDOCYST
     Dosage: 1200 MG, 1X/DAY
     Dates: start: 20120202
  3. CIPROXAN [Suspect]
     Dosage: UNK
     Route: 042
     Dates: start: 20120122
  4. MICAFUNGIN SODIUM [Concomitant]
     Dosage: UNK
     Route: 042
     Dates: start: 20120122

REACTIONS (3)
  - Tremor [Recovering/Resolving]
  - Dyskinesia [Recovering/Resolving]
  - Platelet count decreased [Recovering/Resolving]
